FAERS Safety Report 13772991 (Version 3)
Quarter: 2017Q4

REPORT INFORMATION
  Report Type: Spontaneous
  Country: US (occurrence: US)
  Receive Date: 20170720
  Receipt Date: 20171107
  Transmission Date: 20180320
  Serious: Yes (Hospitalization, Other)
  Sender: FDA-Public Use
  Company Number: US-PFIZER INC-2017313911

PATIENT
  Age: 29 Year
  Sex: Male

DRUGS (1)
  1. PHENYLEPHRINE [Suspect]
     Active Substance: PHENYLEPHRINE\PHENYLEPHRINE HYDROCHLORIDE
     Indication: PRIAPISM
     Dosage: 400 UG, UNK
     Route: 017

REACTIONS (3)
  - Cardiogenic shock [Recovered/Resolved]
  - Acute myocardial infarction [Recovered/Resolved]
  - Respiratory failure [Recovered/Resolved]
